FAERS Safety Report 12076118 (Version 3)
Quarter: 2016Q1

REPORT INFORMATION
  Report Type: Spontaneous
  Country: US (occurrence: US)
  Receive Date: 20160215
  Receipt Date: 20160315
  Transmission Date: 20160526
  Serious: Yes (Hospitalization)
  Sender: FDA-Public Use
  Company Number: US-HORIZON-RAV-0023-2016

PATIENT
  Age: 17 Year
  Sex: Female

DRUGS (2)
  1. CITRULLINE [Concomitant]
     Active Substance: CITRULLINE
     Indication: UREA CYCLE ENZYME DEFICIENCY
  2. RAVICTI [Suspect]
     Active Substance: GLYCEROL PHENYLBUTYRATE
     Indication: UREA CYCLE ENZYME DEFICIENCY
     Dosage: 4.5 ML THREE TIMES DAILY
     Dates: start: 20150915

REACTIONS (4)
  - Hyperammonaemia [Recovered/Resolved]
  - Seizure [Recovered/Resolved]
  - Drug dose omission [Recovered/Resolved]
  - Psychiatric symptom [Unknown]

NARRATIVE: CASE EVENT DATE: 20160203
